FAERS Safety Report 16460955 (Version 8)
Quarter: 2020Q1

REPORT INFORMATION
  Report Type: Report from Study
  Country: None (occurrence: FR)
  Receive Date: 20190621
  Receipt Date: 20200225
  Transmission Date: 20200409
  Serious: Yes (Hospitalization, Other)
  Sender: FDA-Public Use
  Company Number: FR-ABBVIE-19K-056-2823088-00

PATIENT
  Sex: Male
  Weight: 69 kg

DRUGS (16)
  1. TAMSULOSINE [Concomitant]
     Active Substance: TAMSULOSIN HYDROCHLORIDE
     Indication: BENIGN PROSTATIC HYPERPLASIA
     Dates: start: 201604
  2. CIPROFLOXACINE [Concomitant]
     Active Substance: CIPROFLOXACIN
     Indication: PNEUMONIA
     Dates: start: 20190301, end: 20190310
  3. VENCLYXTO [Suspect]
     Active Substance: VENETOCLAX
     Route: 065
     Dates: start: 20190715, end: 20190827
  4. ALLOPURINOL. [Concomitant]
     Active Substance: ALLOPURINOL
     Indication: PROPHYLAXIS
     Dates: start: 20190226, end: 20190228
  5. TAZOCIN [Concomitant]
     Active Substance: PIPERACILLIN SODIUM\TAZOBACTAM SODIUM
     Indication: PNEUMONIA
     Dates: start: 20190301, end: 20190310
  6. FOLIC ACID. [Concomitant]
     Active Substance: FOLIC ACID
     Indication: PROPHYLAXIS
     Dates: start: 20190307
  7. VITAMIN D [Concomitant]
     Active Substance: VITAMIN D NOS
     Indication: PROPHYLAXIS
     Dates: start: 20190426
  8. VENCLYXTO [Suspect]
     Active Substance: VENETOCLAX
     Route: 065
     Dates: start: 20190529, end: 20190714
  9. SERESTA [Concomitant]
     Active Substance: OXAZEPAM
     Indication: ANXIETY
     Dates: start: 20190301, end: 20190326
  10. VENCLYXTO [Suspect]
     Active Substance: VENETOCLAX
     Route: 065
     Dates: start: 20190319, end: 20190528
  11. GABAPENTINE [Concomitant]
     Active Substance: GABAPENTIN
     Indication: PAIN
     Dates: start: 20190303, end: 20190326
  12. VENCLYXTO [Suspect]
     Active Substance: VENETOCLAX
     Route: 065
     Dates: start: 20190312, end: 20190318
  13. VENCLYXTO [Suspect]
     Active Substance: VENETOCLAX
     Route: 065
     Dates: start: 20190828
  14. SYMBICORT [Concomitant]
     Active Substance: BUDESONIDE\FORMOTEROL FUMARATE DIHYDRATE
     Indication: CHRONIC OBSTRUCTIVE PULMONARY DISEASE
     Dates: start: 2014
  15. VENCLYXTO [Suspect]
     Active Substance: VENETOCLAX
     Indication: CHRONIC LYMPHOCYTIC LEUKAEMIA
     Route: 065
     Dates: start: 20190305, end: 20190311
  16. LASILIX [Concomitant]
     Active Substance: FUROSEMIDE
     Indication: PROPHYLAXIS
     Dates: start: 20200103

REACTIONS (17)
  - Anaemia [Not Recovered/Not Resolved]
  - Hypokalaemia [Recovered/Resolved]
  - Influenza [Recovered/Resolved with Sequelae]
  - Hyperferritinaemia [Not Recovered/Not Resolved]
  - Off label use [Unknown]
  - Abdominal pain [Recovered/Resolved]
  - Ejection fraction decreased [Recovered/Resolved]
  - Abdominal pain upper [Recovered/Resolved]
  - Anaemia [Not Recovered/Not Resolved]
  - Neutropenia [Not Recovered/Not Resolved]
  - Dyspnoea [Not Recovered/Not Resolved]
  - Cardiac failure [Recovered/Resolved]
  - Lung disorder [Recovered/Resolved with Sequelae]
  - Dysaesthesia [Recovered/Resolved]
  - Atrial fibrillation [Recovered/Resolved]
  - Neoplasm skin [Recovered/Resolved with Sequelae]
  - Anxiety [Not Recovered/Not Resolved]

NARRATIVE: CASE EVENT DATE: 201903
